FAERS Safety Report 6835278-8 (Version None)
Quarter: 2010Q3

REPORT INFORMATION
  Report Type: 
  Country: None (occurrence: None)
  Receive Date: 20100713
  Receipt Date: 20100630
  Transmission Date: 20110219
  Serious: Yes (Other)
  Sender: FDA-Public Use
  Company Number: PL-BAYER-201031179GPV

PATIENT
  Age: 71 Year
  Sex: Male

DRUGS (12)
  1. FLUDARABINE PHOSPHATE [Suspect]
     Indication: CHRONIC LYMPHOCYTIC LEUKAEMIA
     Dosage: 2 COURSES
  2. THALIDOMIDE [Suspect]
     Indication: CHRONIC LYMPHOCYTIC LEUKAEMIA
     Dosage: 2 COURSES
  3. PREDNISONE [Concomitant]
     Indication: PRODUCT USED FOR UNKNOWN INDICATION
  4. PREDNISONE [Concomitant]
     Dosage: 7 CYCLES
     Dates: start: 20070301, end: 20080101
  5. CHLORAMBUCIL [Concomitant]
     Indication: PRODUCT USED FOR UNKNOWN INDICATION
  6. CHLORAMBUCIL [Concomitant]
     Dosage: 7 CYCLES
     Dates: start: 20070301, end: 20080101
  7. ANTIHYPERTENSIVA [Concomitant]
     Indication: HYPERTENSION
  8. ANTIBIOTIC OINTMENT [Concomitant]
     Indication: SUPERINFECTION BACTERIAL
  9. DEXAMETHASONE SODIUM PHOSPHATE [Concomitant]
     Indication: SKIN ULCER
  10. DOXYCYCLINE [Concomitant]
     Indication: SKIN ULCER
     Dosage: AS USED: 200 MG  UNIT DOSE: 100 MG
  11. CLAVULANATE POTASSIUM [Concomitant]
     Indication: SKIN ULCER
     Dosage: AS USED: 2.4 G  UNIT DOSE: 1.2 G
  12. AMOXICILLIN [Concomitant]
     Indication: SKIN ULCER
     Dosage: AS USED: 2.4 G  UNIT DOSE: 1.2 G

REACTIONS (4)
  - HERPES ZOSTER [None]
  - INFECTION [None]
  - RENAL FAILURE ACUTE [None]
  - SKIN ULCER [None]
